FAERS Safety Report 19480851 (Version 1)
Quarter: 2021Q2

REPORT INFORMATION
  Report Type: Spontaneous
  Country: US (occurrence: US)
  Receive Date: 20210630
  Receipt Date: 20210630
  Transmission Date: 20210717
  Serious: No
  Sender: FDA-Public Use
  Company Number: None

PATIENT
  Age: 65 Year
  Sex: Male
  Weight: 104 kg

DRUGS (1)
  1. DALBAVANCIN (DALBAVANCIN 500MG/VIL INJ) [Suspect]
     Active Substance: DALBAVANCIN
     Indication: SKIN ULCER
     Route: 042
     Dates: start: 20210625, end: 20210625

REACTIONS (1)
  - Back pain [None]

NARRATIVE: CASE EVENT DATE: 20210625
